FAERS Safety Report 12605927 (Version 2)
Quarter: 2019Q4

REPORT INFORMATION
  Report Type: Spontaneous
  Country: GB (occurrence: GB)
  Receive Date: 20160729
  Receipt Date: 20191021
  Transmission Date: 20200122
  Serious: Yes (Other)
  Sender: FDA-Public Use
  Company Number: GB-TEVA-679619ACC

PATIENT
  Sex: Female

DRUGS (5)
  1. PAROXETINE. [Suspect]
     Active Substance: PAROXETINE
     Indication: PRODUCT USED FOR UNKNOWN INDICATION
     Dosage: 30 MILLIGRAM DAILY; 30 MG, QD
     Route: 065
     Dates: start: 20020501, end: 20160622
  2. PAXIL [Suspect]
     Active Substance: PAROXETINE HYDROCHLORIDE
     Indication: PRODUCT USED FOR UNKNOWN INDICATION
     Dosage: UNK
     Route: 065
  3. PAROXETINE. [Suspect]
     Active Substance: PAROXETINE
     Dosage: 20 MILLIGRAM DAILY; 20 MG, QD
     Route: 065
     Dates: start: 20020906, end: 20151218
  4. PAROXETINE. [Suspect]
     Active Substance: PAROXETINE
     Dosage: UNK
     Route: 065
     Dates: start: 199905
  5. PAROXETINE HYDROCHLORIDE. [Suspect]
     Active Substance: PAROXETINE HYDROCHLORIDE
     Indication: PRODUCT USED FOR UNKNOWN INDICATION
     Dosage: 20MG/10ML
     Route: 065
     Dates: start: 20080714

REACTIONS (23)
  - Panic attack [Unknown]
  - Chest discomfort [Unknown]
  - Asthenia [Unknown]
  - Chest pain [Unknown]
  - Headache [Unknown]
  - Decreased appetite [Unknown]
  - Migraine [Unknown]
  - Initial insomnia [Unknown]
  - Depression [Unknown]
  - Withdrawal syndrome [Unknown]
  - Peripheral swelling [Unknown]
  - Nausea [Unknown]
  - Disturbance in attention [Unknown]
  - Feeling abnormal [Unknown]
  - Feeling of despair [Unknown]
  - Sensory disturbance [Unknown]
  - Dyskinesia [Unknown]
  - Depressed mood [Unknown]
  - Maternal exposure during pregnancy [Unknown]
  - Incoherent [Unknown]
  - Irritability [Unknown]
  - Social avoidant behaviour [Unknown]
  - Abulia [Unknown]

NARRATIVE: CASE EVENT DATE: 20020906
